FAERS Safety Report 7906150-7 (Version None)
Quarter: 2011Q4

REPORT INFORMATION
  Report Type: 
  Country: None (occurrence: None)
  Receive Date: 20111027
  Receipt Date: 20101101
  Transmission Date: 20120403
  Serious: Yes (Hospitalization, Other)
  Sender: FDA-Public Use
  Company Number: 2010-3583

PATIENT
  Age: 6 Year
  Sex: Male
  Weight: 17.1 kg

DRUGS (1)
  1. INCRELEX [Suspect]
     Indication: INSULIN-LIKE GROWTH FACTOR DECREASED
     Dosage: 0.22 MG/KG (0.11 MG/KG, 2 IN 1 D), SUBCUTANEOUS
     Route: 058
     Dates: start: 20090302, end: 20100515

REACTIONS (13)
  - HAEMOGLOBIN DECREASED [None]
  - SLEEP APNOEA SYNDROME [None]
  - IGA NEPHROPATHY [None]
  - WHITE BLOOD CELL COUNT DECREASED [None]
  - PROTEIN URINE PRESENT [None]
  - ADENOTONSILLECTOMY [None]
  - HAEMATURIA [None]
  - HAEMATOCRIT DECREASED [None]
  - SNORING [None]
  - BETA HAEMOLYTIC STREPTOCOCCAL INFECTION [None]
  - PYREXIA [None]
  - CHROMATURIA [None]
  - ABDOMINAL PAIN [None]
